FAERS Safety Report 10866493 (Version 1)
Quarter: 2015Q1

REPORT INFORMATION
  Report Type: Spontaneous
  Country: US (occurrence: None)
  Receive Date: 20150220
  Receipt Date: 20150220
  Transmission Date: 20150721
  Serious: Yes (Disabling)
  Sender: FDA-Public Use
  Company Number: None

PATIENT
  Age: 52 Year
  Sex: Female
  Weight: 108.86 kg

DRUGS (7)
  1. TYLENOL [Concomitant]
     Active Substance: ACETAMINOPHEN
  2. NAPROXEN. [Concomitant]
     Active Substance: NAPROXEN
  3. LISINOPRIL. [Concomitant]
     Active Substance: LISINOPRIL
  4. HYDROCHLOROTHIZIDE [Concomitant]
     Active Substance: HYDROCHLOROTHIAZIDE
  5. AMLODIPINE [Suspect]
     Active Substance: AMLODIPINE BESYLATE
     Indication: HYPERTENSION
     Dosage: 1 TAB
     Route: 048
     Dates: start: 20150119, end: 20150124
  6. FLONAIZE [Concomitant]
  7. METROPOLOL [Concomitant]
     Active Substance: METOPROLOL

REACTIONS (5)
  - Peripheral swelling [None]
  - Activities of daily living impaired [None]
  - Pain in extremity [None]
  - Quality of life decreased [None]
  - Contusion [None]

NARRATIVE: CASE EVENT DATE: 20150127
